FAERS Safety Report 24172208 (Version 2)
Quarter: 2025Q1

REPORT INFORMATION
  Report Type: Spontaneous
  Country: US (occurrence: US)
  Receive Date: 20240805
  Receipt Date: 20250108
  Transmission Date: 20250409
  Serious: Yes (Other)
  Sender: Kilitch Healthcare
  Company Number: US-KHC-000064

PATIENT
  Sex: Male

DRUGS (1)
  1. DEXTRAN 70, HYPROMELLOSE 2910 [Suspect]
     Active Substance: DEXTRAN 70\HYPROMELLOSE 2910 (4000 MPA.S)
     Indication: Product used for unknown indication
     Dosage: 1 DROP IN EACH EYE
     Route: 065
     Dates: start: 2021, end: 2023

REACTIONS (6)
  - Blindness [Unknown]
  - Eye haemorrhage [Unknown]
  - Vision blurred [Unknown]
  - Recalled product administered [Unknown]
  - Eye infection [Unknown]
  - Ocular hyperaemia [Unknown]

NARRATIVE: CASE EVENT DATE: 20230101
